FAERS Safety Report 9710783 (Version 1)
Quarter: 2013Q4

REPORT INFORMATION
  Report Type: Spontaneous
  Country: US (occurrence: US)
  Receive Date: 20131126
  Receipt Date: 20131126
  Transmission Date: 20140711
  Serious: No
  Sender: FDA-Public Use
  Company Number: US-BRISTOL-MYERS SQUIBB COMPANY-19001304

PATIENT
  Age: 71 Year
  Sex: Female
  Weight: 104.31 kg

DRUGS (4)
  1. BYETTA [Suspect]
     Indication: TYPE 2 DIABETES MELLITUS
     Dosage: INITIALLY GIVEN 5MCG IN 2008
     Route: 058
     Dates: start: 2008
  2. GLIPIZIDE [Concomitant]
  3. CRESTOR [Concomitant]
  4. FENOFIBRATE [Concomitant]

REACTIONS (1)
  - Injection site extravasation [Unknown]
